FAERS Safety Report 8294610-1 (Version None)
Quarter: 2012Q2

REPORT INFORMATION
  Report Type: 
  Country: None (occurrence: None)
  Receive Date: 20120418
  Receipt Date: 20120412
  Transmission Date: 20120825
  Serious: Yes (Hospitalization)
  Sender: FDA-Public Use
  Company Number: US-ACTELION-A-US2012-62930

PATIENT

DRUGS (2)
  1. VENTAVIS [Suspect]
     Indication: PULMONARY ARTERIAL HYPERTENSION
     Dosage: UNK
     Route: 055
     Dates: start: 20081022
  2. REVATIO [Concomitant]

REACTIONS (4)
  - PALPITATIONS [None]
  - PROTEIN URINE PRESENT [None]
  - CHEST PAIN [None]
  - PAIN IN EXTREMITY [None]
